FAERS Safety Report 4373954-X (Version None)
Quarter: 2004Q1

REPORT INFORMATION
  Report Type: 
  Country: None (occurrence: None)
  Receive Date: 20040305
  Receipt Date: 20031202
  Transmission Date: 20041129
  Serious: Yes (Other)
  Sender: FDA-Public Use
  Company Number: 2003UW16117

PATIENT
  Sex: Male

DRUGS (3)
  1. ATACAND [Suspect]
     Dosage: 32 MG PO
     Route: 048
  2. CRESTOR [Suspect]
     Dosage: 10 MG PO
     Route: 048
  3. TOPROL-XL [Suspect]

REACTIONS (1)
  - LYMPHADENOPATHY [None]
